FAERS Safety Report 5086025-4 (Version None)
Quarter: 2006Q3

REPORT INFORMATION
  Report Type: 
  Country: None (occurrence: None)
  Receive Date: 20060817
  Receipt Date: 20060810
  Transmission Date: 20061208
  Serious: Yes (Hospitalization)
  Sender: FDA-Public Use
  Company Number: 2006-04440

PATIENT
  Age: 66 Year
  Sex: Female

DRUGS (5)
  1. LORAZEPAM [Suspect]
     Indication: INTENTIONAL DRUG MISUSE
     Dosage: 10 MG, SINGLE, ORAL
     Route: 048
  2. FLUOXETINE [Suspect]
     Indication: INTENTIONAL DRUG MISUSE
     Dosage: 60 MG, SINGLE, ORAL
     Route: 048
  3. TRANYLCYPROMINE SULFATE [Suspect]
     Indication: INTENTIONAL DRUG MISUSE
     Dosage: 100 MG, SINGLE, ORAL
     Route: 048
  4. TRIFLUOPERAZINE HCL [Suspect]
     Indication: INTENTIONAL DRUG MISUSE
     Dosage: 20 MG, SINGLE, ORAL
     Route: 048
  5. REMIFENTANIL(REMIFENTANIL) [Suspect]
     Indication: INTENTIONAL DRUG MISUSE
     Dosage: 5.7 MCG, PER KG HR INFUSION, INTRAVENOUS
     Route: 042

REACTIONS (3)
  - DRUG INTERACTION [None]
  - EYE MOVEMENT DISORDER [None]
  - SEROTONIN SYNDROME [None]
